FAERS Safety Report 5771687-6 (Version None)
Quarter: 2008Q2

REPORT INFORMATION
  Report Type: 
  Country: None (occurrence: None)
  Receive Date: 20080613
  Receipt Date: 20080606
  Transmission Date: 20081010
  Serious: Yes (Hospitalization, Other)
  Sender: FDA-Public Use
  Company Number: US-BAYER-200820235NA

PATIENT
  Age: 42 Year
  Sex: Female

DRUGS (2)
  1. AVELOX [Suspect]
     Indication: ACUTE SINUSITIS
     Dosage: TOTAL DAILY DOSE: 400 MG  UNIT DOSE: 400 MG
     Route: 048
     Dates: start: 20031106, end: 20031106
  2. QUESTRAN [Concomitant]
     Indication: DIARRHOEA

REACTIONS (3)
  - ANAPHYLACTIC SHOCK [None]
  - HYPERHIDROSIS [None]
  - HYPOTENSION [None]
